FAERS Safety Report 14581743 (Version 1)
Quarter: 2018Q1

REPORT INFORMATION
  Report Type: Spontaneous
  Country: US (occurrence: US)
  Receive Date: 20180227
  Receipt Date: 20180227
  Transmission Date: 20180509
  Serious: No
  Sender: FDA-Public Use
  Company Number: None

PATIENT
  Age: 19 Year
  Sex: Male
  Weight: 61.23 kg

DRUGS (1)
  1. CHILL GUMMIES DIAMOND CBD [Suspect]
     Active Substance: CANNABIDIOL
     Indication: SUBSTANCE USE
     Route: 048
     Dates: start: 20180211

REACTIONS (5)
  - Toxicity to various agents [None]
  - Paranoia [None]
  - Muscle twitching [None]
  - Hyperhidrosis [None]
  - Palpitations [None]

NARRATIVE: CASE EVENT DATE: 20180210
